FAERS Safety Report 6663040-8 (Version None)
Quarter: 2010Q2

REPORT INFORMATION
  Report Type: 
  Country: None (occurrence: None)
  Receive Date: 20100401
  Receipt Date: 20100325
  Transmission Date: 20101027
  Serious: Yes (Congenital Anomaly, Other)
  Sender: FDA-Public Use
  Company Number: TR-ELI_LILLY_AND_COMPANY-TR201003008519

PATIENT

DRUGS (4)
  1. HUMULIN 70/30 [Suspect]
     Indication: GESTATIONAL DIABETES
     Dosage: 15 IU, EACH MORNING
     Route: 064
     Dates: start: 20090101, end: 20091107
  2. HUMULIN 70/30 [Suspect]
     Dosage: 8 IU, EACH EVENING
     Route: 064
     Dates: start: 20090101, end: 20091107
  3. MAGNESIUM [Concomitant]
     Indication: SUPPLEMENTATION THERAPY
     Dosage: UNK, DAILY (1/D)
     Route: 064
     Dates: start: 20090101, end: 20091107
  4. IRON [Concomitant]
     Indication: SUPPLEMENTATION THERAPY
     Dosage: UNK, DAILY (1/D)
     Route: 064
     Dates: start: 20090101, end: 20091107

REACTIONS (3)
  - CONGENITAL HEART VALVE DISORDER [None]
  - DRUG EXPOSURE DURING PREGNANCY [None]
  - MATERNAL DRUGS AFFECTING FOETUS [None]
